FAERS Safety Report 17988114 (Version 1)
Quarter: 2020Q3

REPORT INFORMATION
  Report Type: Report from Study
  Country: US (occurrence: US)
  Receive Date: 20200707
  Receipt Date: 20200707
  Transmission Date: 20201103
  Serious: Yes (Hospitalization)
  Sender: FDA-Public Use
  Company Number: US-ROCHE-1930239

PATIENT
  Age: 75 Year
  Sex: Female
  Weight: 103 kg

DRUGS (2)
  1. TRASTUZUMAB EMTANSINE [Suspect]
     Active Substance: ADO-TRASTUZUMAB EMTANSINE
     Indication: NEOPLASM
     Dosage: TRASTUZUMAB EMTANSINE INTRAVENOUSLY (IV) OVER 30?90 MINUTES ON DAY 1. COURSES REPEAT EVERY 21 DAYS I
     Route: 042
     Dates: start: 20170120
  2. FUROSEMIDE. [Concomitant]
     Active Substance: FUROSEMIDE
     Indication: OEDEMA
     Dosage: AFTER INCREASING THE DOSE EDEMA SLIGHTLY IMPROVED
     Route: 065

REACTIONS (1)
  - Skin infection [Recovering/Resolving]

NARRATIVE: CASE EVENT DATE: 20170316
